FAERS Safety Report 9436492 (Version 2)
Quarter: 2015Q3

REPORT INFORMATION
  Report Type: Report from Study
  Country: US (occurrence: US)
  Receive Date: 20130802
  Receipt Date: 20150717
  Transmission Date: 20151125
  Serious: Yes (Hospitalization)
  Sender: FDA-Public Use
  Company Number: US-ROCHE-1256234

PATIENT
  Sex: Female

DRUGS (2)
  1. XELODA [Suspect]
     Active Substance: CAPECITABINE
     Indication: GASTRIC CANCER
     Dosage: 21 DAYS ON AND 7 DAYS OFF?2 TABLETS IN THE MORNING AND 3 TABLETS IN THE EVENING.
     Route: 048
     Dates: start: 20130628
  2. XELODA [Suspect]
     Active Substance: CAPECITABINE
     Indication: METASTASES TO LUNG

REACTIONS (2)
  - Blood glucose decreased [Not Recovered/Not Resolved]
  - Diabetic coma [Not Recovered/Not Resolved]
